FAERS Safety Report 23368332 (Version 3)
Quarter: 2024Q1

REPORT INFORMATION
  Report Type: Report from Study
  Country: US (occurrence: US)
  Receive Date: 20240105
  Receipt Date: 20240307
  Transmission Date: 20240410
  Serious: No
  Sender: FDA-Public Use
  Company Number: US-ACADIA PHARMACEUTICALS INC.-ACA-2023-TRF-005752

PATIENT
  Age: 11 Year
  Sex: Female
  Weight: 68.9 kg

DRUGS (8)
  1. DAYBUE [Suspect]
     Active Substance: TROFINETIDE
     Indication: Rett syndrome
     Dosage: 60 MILLILITER, BID
     Route: 048
     Dates: start: 20231116
  2. FERROUS SULFATE [Concomitant]
     Active Substance: FERROUS SULFATE
     Dosage: UNK
     Route: 048
     Dates: start: 202310, end: 20240209
  3. BACTROBAN [Concomitant]
     Active Substance: MUPIROCIN CALCIUM
     Dosage: APPLY SMALL AMOUNT TOPICALLY TO THE AFFECTED AREA THREE TIMES DAILY
     Route: 061
     Dates: start: 20230322, end: 20240209
  4. RIBOFLAVIN [Concomitant]
     Active Substance: RIBOFLAVIN
     Dosage: 400 MILLIGRAM
     Route: 048
     Dates: end: 20240209
  5. ABILIFY [Concomitant]
     Active Substance: ARIPIPRAZOLE
     Dosage: 15 MILLIGRAM, QD
     Route: 048
     Dates: start: 20231204, end: 20240209
  6. KLONOPIN [Concomitant]
     Active Substance: CLONAZEPAM
     Dosage: 0.5 MILLIGRAM, BID
     Route: 048
     Dates: start: 20240105, end: 20240209
  7. KLONOPIN [Concomitant]
     Active Substance: CLONAZEPAM
     Dosage: 1 TABLET TO DISSOLVE IN MOUTH IN THE MORNING AND IN THE EVENING AS SCHEDULED; 0.25 MG
     Route: 048
  8. ZOLOFT [Concomitant]
     Active Substance: SERTRALINE HYDROCHLORIDE
     Dosage: 1 AND 1/2 TABLETS BY MOUTH DAILY
     Route: 048
     Dates: start: 20231022, end: 20240209

REACTIONS (7)
  - Aggression [Not Recovered/Not Resolved]
  - Retching [Not Recovered/Not Resolved]
  - Product use complaint [Not Recovered/Not Resolved]
  - Nausea [Not Recovered/Not Resolved]
  - Anger [Not Recovered/Not Resolved]
  - Diarrhoea [Recovered/Resolved]
  - Vomiting [Recovered/Resolved]

NARRATIVE: CASE EVENT DATE: 20231101
